FAERS Safety Report 4334780-0 (Version None)
Quarter: 2004Q2

REPORT INFORMATION
  Report Type: 
  Country: None (occurrence: None)
  Receive Date: 20040405
  Receipt Date: 20040324
  Transmission Date: 20050107
  Serious: Yes (Other)
  Sender: FDA-Public Use
  Company Number: NSADSS2002005943

PATIENT
  Age: 72 Year
  Sex: Female

DRUGS (4)
  1. REMICADE [Suspect]
     Indication: UNEVALUABLE EVENT
     Dosage: INTRAVENOUS DRIP
     Route: 041
     Dates: start: 20000313, end: 20000424
  2. METHOTREXATE [Concomitant]
  3. CORTICOSTEROID NOS (CORTICOSTEROID NOS) [Concomitant]
  4. LEVOTHROID [Concomitant]

REACTIONS (2)
  - LYMPHADENOPATHY [None]
  - MYCOBACTERIAL INFECTION [None]
